FAERS Safety Report 8817402 (Version 4)
Quarter: 2012Q4

REPORT INFORMATION
  Report Type: 
  Country: US (occurrence: US)
  Receive Date: 20121004
  Receipt Date: 20121228
  Transmission Date: 20130627
  Serious: Yes (Hospitalization)
  Sender: FDA-Public Use
  Company Number: US-PFIZER INC-2012233824

PATIENT
  Age: 70 Year
  Sex: Male
  Weight: 79 kg

DRUGS (12)
  1. CRIZOTINIB [Suspect]
     Indication: BLADDER CANCER
     Dosage: 250 mg, 2x/day
     Route: 048
     Dates: start: 20120906, end: 20120920
  2. CRIZOTINIB [Suspect]
     Indication: LIVER METASTASES
  3. METOPROLOL TARTRATE [Concomitant]
     Indication: HYPERTENSION
     Dosage: 25 mg, 2x/day, as needed
     Route: 048
     Dates: start: 20090713, end: 20120923
  4. ACETYLCYSTEINE [Concomitant]
     Indication: SUPPLEMENTATION THERAPY
     Dosage: 600 mg, UNK
     Route: 048
     Dates: start: 20120620
  5. FEXOFENADINE [Concomitant]
     Indication: ALLERGY
     Dosage: 180 mg, 1x/day
     Route: 048
     Dates: start: 20090713
  6. LIDOCAINE/PRILOCAINE [Concomitant]
     Indication: PAIN PROPHYLAXIS
     Dosage: UNK
     Route: 061
     Dates: start: 20110303
  7. ONDANSETRON [Concomitant]
     Indication: NAUSEA
     Dosage: 8 mg, as needed
     Route: 048
     Dates: start: 20120502
  8. POTASSIUM CHLORIDE [Concomitant]
     Indication: SUPPLEMENTATION THERAPY
     Dosage: 20 mEq, as needed
     Route: 048
     Dates: start: 20090713
  9. PROMETHAZINE [Concomitant]
     Indication: NAUSEA
     Dosage: 25 mg, q 4 hrs, as needed
     Route: 054
     Dates: start: 20120516
  10. PROMETHAZINE [Concomitant]
     Indication: NAUSEA
     Dosage: 12.5 mg, q 4 hrs, as needed
     Route: 048
     Dates: start: 20120516
  11. ZOCOR [Concomitant]
     Indication: HYPERCHOLESTEREMIA
     Dosage: 80 mg, 1x/day (q HS)
     Route: 048
     Dates: start: 20120516
  12. MULTIVITAMINS [Concomitant]
     Indication: SUPPLEMENTATION THERAPY
     Dosage: UNK
     Dates: start: 20090713

REACTIONS (2)
  - Hypotension [Recovered/Resolved]
  - Dehydration [Recovered/Resolved]
